FAERS Safety Report 7889590-4 (Version None)
Quarter: 2011Q4

REPORT INFORMATION
  Report Type: 
  Country: None (occurrence: None)
  Receive Date: 20111103
  Receipt Date: 20110602
  Transmission Date: 20120403
  Serious: No
  Sender: FDA-Public Use
  Company Number: US-BRISTOL-MYERS SQUIBB COMPANY-15800790

PATIENT
  Age: 72 Year
  Sex: Female

DRUGS (1)
  1. KENALOG-40 [Suspect]
     Dosage: 3RD INJ ON 02JUN2011.

REACTIONS (3)
  - ABASIA [None]
  - ASTHENIA [None]
  - PARAESTHESIA [None]
